FAERS Safety Report 14853306 (Version 4)
Quarter: 2018Q3

REPORT INFORMATION
  Report Type: Spontaneous
  Country: CA (occurrence: CA)
  Receive Date: 20180507
  Receipt Date: 20180821
  Transmission Date: 20181010
  Serious: Yes (Other)
  Sender: FDA-Public Use
  Company Number: CA-CELLTRION INC.-2017CA005621

PATIENT

DRUGS (15)
  1. EFFEXOR [Concomitant]
     Active Substance: VENLAFAXINE HYDROCHLORIDE
     Dosage: 187 MG, DAILY
     Route: 065
     Dates: start: 2015
  2. CALCIUM CARBONATE. [Concomitant]
     Active Substance: CALCIUM CARBONATE
     Dosage: 500 MG, BID
     Route: 065
     Dates: start: 2016
  3. PANTOLOC                           /01263204/ [Concomitant]
     Active Substance: PANTOPRAZOLE SODIUM
     Dosage: 40 MG, BID
     Route: 065
     Dates: start: 2016
  4. INFLECTRA [Suspect]
     Active Substance: INFLIXIMAB-DYYB
     Dosage: 500 MG, EVERY 8 WEEKS
     Route: 042
     Dates: start: 20180105
  5. CODEINE [Concomitant]
     Active Substance: CODEINE
     Dosage: 16 MG, TWICE DAILY
     Route: 065
     Dates: start: 2015
  6. INFLECTRA [Suspect]
     Active Substance: INFLIXIMAB-DYYB
     Indication: CROHN^S DISEASE
     Dosage: 550 MG, CYCLIC, EVERY 2, 6 WEEKS, THEN EVERY 8 WEEKS FOR 6 MONTHS
     Route: 042
     Dates: start: 20170413, end: 20170413
  7. INFLECTRA [Suspect]
     Active Substance: INFLIXIMAB-DYYB
     Dosage: 550 MG, CYCLIC, EVERY 2, 6 WEEKS, THEN EVERY 8 WEEKS FOR 6 MONTHS
     Route: 042
     Dates: start: 20170428, end: 20170428
  8. INFLECTRA [Suspect]
     Active Substance: INFLIXIMAB-DYYB
     Dosage: 500 MG, EVERY 8 WEEKS
     Route: 042
     Dates: start: 20180309
  9. VITAMIN B [Concomitant]
     Active Substance: VITAMIN B
     Dosage: 2000 IU, DAILY
     Route: 065
     Dates: start: 2016
  10. SEROQUEL [Concomitant]
     Active Substance: QUETIAPINE FUMARATE
     Dosage: 225 MG DAILY (150 MG ONCE DAILY, 75 MG AT BEDTIME)
     Route: 065
     Dates: start: 2015
  11. INFLECTRA [Suspect]
     Active Substance: INFLIXIMAB-DYYB
     Dosage: 500 MG, CYCLIC, EVERY 2, 6 WEEKS, THEN EVERY 8 WEEKS FOR 6 MONTHS
     Route: 042
     Dates: start: 20170428
  12. ZOPLICONE [Concomitant]
     Active Substance: ZOPICLONE
     Dosage: 18.75 MG ONCE DAILY AT BEDTIME
     Route: 065
     Dates: start: 2015
  13. INFLECTRA [Suspect]
     Active Substance: INFLIXIMAB-DYYB
     Dosage: 550MG EVERY 8 WEEKS
     Route: 042
     Dates: start: 20180427
  14. INFLECTRA [Suspect]
     Active Substance: INFLIXIMAB-DYYB
     Dosage: 550MG EVERY 8 WEEKS
     Route: 042
     Dates: start: 20180622, end: 20180622
  15. INFLECTRA [Suspect]
     Active Substance: INFLIXIMAB-DYYB
     Dosage: 600 MG, EVERY 6 WEEKS
     Route: 042
     Dates: start: 20180808

REACTIONS (16)
  - Feeling abnormal [Not Recovered/Not Resolved]
  - Insomnia [Unknown]
  - Weight increased [Unknown]
  - Anal fissure [Unknown]
  - Abscess [Unknown]
  - Flatulence [Unknown]
  - Malaise [Not Recovered/Not Resolved]
  - Gastrointestinal disorder [Unknown]
  - Cough [Unknown]
  - Drug ineffective [Recovering/Resolving]
  - Oxygen saturation abnormal [Unknown]
  - Pain [Unknown]
  - Lower respiratory tract infection [Not Recovered/Not Resolved]
  - Off label use [Unknown]
  - Drug level below therapeutic [Unknown]
  - Body temperature fluctuation [Unknown]

NARRATIVE: CASE EVENT DATE: 2017
